FAERS Safety Report 24679980 (Version 3)
Quarter: 2025Q3

REPORT INFORMATION
  Report Type: Spontaneous
  Country: US (occurrence: US)
  Receive Date: 20241129
  Receipt Date: 20250810
  Transmission Date: 20251020
  Serious: No
  Sender: ALEXION PHARMACEUTICALS
  Company Number: US-AstraZeneca-CH-00754213AP

PATIENT
  Age: 17 Year
  Sex: Male

DRUGS (1)
  1. FASENRA [Suspect]
     Active Substance: BENRALIZUMAB
     Indication: Product used for unknown indication
     Dosage: 30 MILLIGRAM PER MILLILITRE, Q4W
     Route: 065
     Dates: start: 202410

REACTIONS (3)
  - Product dose omission issue [Unknown]
  - Device dislocation [Unknown]
  - Device leakage [Unknown]

NARRATIVE: CASE EVENT DATE: 20241101
